FAERS Safety Report 7754350-1 (Version None)
Quarter: 2011Q3

REPORT INFORMATION
  Report Type: 
  Country: None (occurrence: None)
  Receive Date: 20110915
  Receipt Date: 20110913
  Transmission Date: 20111222
  Serious: Yes (Other)
  Sender: FDA-Public Use
  Company Number: GB-SP-2011-08625

PATIENT
  Age: 85 Year
  Sex: Male

DRUGS (1)
  1. IMMUCYST [Suspect]
     Indication: PRODUCT USED FOR UNKNOWN INDICATION
     Route: 065

REACTIONS (7)
  - MALAISE [None]
  - BEDRIDDEN [None]
  - PAIN IN EXTREMITY [None]
  - LETHARGY [None]
  - VOMITING [None]
  - WEIGHT BEARING DIFFICULTY [None]
  - MUSCULOSKELETAL PAIN [None]
